FAERS Safety Report 9656492 (Version 1)
Quarter: 2013Q4

REPORT INFORMATION
  Report Type: Spontaneous
  Country: US (occurrence: None)
  Receive Date: 20131029
  Receipt Date: 20131029
  Transmission Date: 20140711
  Serious: Yes (Death)
  Sender: FDA-Public Use
  Company Number: None

PATIENT
  Age: 83 Year
  Sex: 0

DRUGS (1)
  1. CYCLOPHOSPHAMIDE [Suspect]
     Indication: PLASMA CELL MYELOMA
     Dosage: 7 TABS (350MG)  DAY 1, 8, 15 AND 22  PO
     Route: 048
     Dates: start: 20121016, end: 20131025

REACTIONS (1)
  - Death [None]
